FAERS Safety Report 11121964 (Version 2)
Quarter: 2015Q2

REPORT INFORMATION
  Report Type: Spontaneous
  Country: US (occurrence: US)
  Receive Date: 20150519
  Receipt Date: 20150528
  Transmission Date: 20150821
  Serious: Yes (Other)
  Sender: FDA-Public Use
  Company Number: US-APOTEX-2015AP009117

PATIENT
  Age: 67 Year
  Sex: Female

DRUGS (3)
  1. SODIUM NITROPRUSSIDE [Suspect]
     Active Substance: SODIUM NITROPRUSSIDE
     Indication: HYPERTENSION
     Dosage: 319 MG, FOR 70 HOURS
     Route: 065
  2. QUETIAPINE FUMARATE. [Suspect]
     Active Substance: QUETIAPINE FUMARATE
     Indication: DELIRIUM
     Route: 065
  3. AMIODARONE HCL INJECTION [Suspect]
     Active Substance: AMIODARONE HYDROCHLORIDE
     Indication: PRODUCT USED FOR UNKNOWN INDICATION
     Route: 065

REACTIONS (7)
  - Delirium [Recovered/Resolved]
  - Lactic acidosis [Recovering/Resolving]
  - Tachycardia [Recovering/Resolving]
  - Toxicity to various agents [Recovering/Resolving]
  - Nausea [Recovering/Resolving]
  - Atrioventricular block complete [Recovering/Resolving]
  - Anuria [Recovering/Resolving]
